FAERS Safety Report 18972343 (Version 3)
Quarter: 2021Q2

REPORT INFORMATION
  Report Type: Spontaneous
  Country: US (occurrence: US)
  Receive Date: 20210305
  Receipt Date: 20210601
  Transmission Date: 20210717
  Serious: No
  Sender: FDA-Public Use
  Company Number: US-GLAXOSMITHKLINE-US2021AMR057648

PATIENT
  Sex: Female

DRUGS (1)
  1. ALBUTEROL SULFATE. [Suspect]
     Active Substance: ALBUTEROL SULFATE
     Indication: PRODUCT USED FOR UNKNOWN INDICATION
     Dosage: UNK(90 MCG, 18G/200 METERED)
     Route: 055

REACTIONS (5)
  - Wrong technique in product usage process [Unknown]
  - Product complaint [Unknown]
  - Drug ineffective [Unknown]
  - Product storage error [Unknown]
  - Wrong technique in device usage process [Unknown]
